FAERS Safety Report 4755056-3 (Version None)
Quarter: 2005Q3

REPORT INFORMATION
  Report Type: 
  Country: None (occurrence: None)
  Receive Date: 20050826
  Receipt Date: 20031231
  Transmission Date: 20060218
  Serious: Yes (Other)
  Sender: FDA-Public Use
  Company Number: USA-2003-0012337

PATIENT
  Age: 35 Year
  Sex: Male

DRUGS (3)
  1. OXYCODONE HCL [Suspect]
  2. HYDROCODONE BITARTRATE [Suspect]
  3. XANAX [Suspect]

REACTIONS (1)
  - DRUG ABUSER [None]
